FAERS Safety Report 5130646-7 (Version None)
Quarter: 2006Q4

REPORT INFORMATION
  Report Type: 
  Country: None (occurrence: None)
  Receive Date: 20061017
  Receipt Date: 20061017
  Transmission Date: 20070319
  Serious: Yes (Hospitalization, Other)
  Sender: FDA-Public Use
  Company Number: None

PATIENT
  Age: 80 Year
  Sex: Male
  Weight: 96.2 kg

DRUGS (2)
  1. GEMFIBROZIL [Suspect]
     Indication: HYPERLIPIDAEMIA
     Dosage: 600MG PO BID
     Route: 048
     Dates: start: 20060511, end: 20060608
  2. SIMVASTATIN [Suspect]
     Dosage: 80MG PO AT BEDTIME
     Route: 048
     Dates: start: 19990810, end: 20060608

REACTIONS (1)
  - RHABDOMYOLYSIS [None]
